FAERS Safety Report 10149813 (Version 1)
Quarter: 2014Q2

REPORT INFORMATION
  Report Type: Spontaneous
  Country: US (occurrence: None)
  Receive Date: 20140501
  Receipt Date: 20140501
  Transmission Date: 20141212
  Serious: No
  Sender: FDA-Public Use
  Company Number: None

PATIENT
  Age: 70 Year
  Sex: Female
  Weight: 72.58 kg

DRUGS (11)
  1. NIACIN [Suspect]
     Indication: BLOOD CHOLESTEROL ABNORMAL
     Dosage: 1 TAB
     Route: 048
     Dates: start: 20140327
  2. LOSARTAN WITH HYDROCHLOROTHIAZIDE [Concomitant]
  3. KOMBIGLYZE XR [Concomitant]
  4. CRESTOR [Concomitant]
  5. MELOXICAM [Concomitant]
  6. LUTEIN + ZEAXANTHIN [Concomitant]
  7. OMEGA 3 [Concomitant]
  8. COQ10 [Concomitant]
  9. CALCIUM W/D [Concomitant]
  10. MULTI VIT [Concomitant]
  11. LOW DOSE ASPIRIN [Concomitant]

REACTIONS (5)
  - Formication [None]
  - Burning sensation [None]
  - Erythema [None]
  - Feeling abnormal [None]
  - Product label issue [None]
